FAERS Safety Report 7075289-3 (Version None)
Quarter: 2010Q4

REPORT INFORMATION
  Report Type: 
  Country: None (occurrence: None)
  Receive Date: 20101030
  Receipt Date: 20100616
  Transmission Date: 20110411
  Serious: No
  Sender: FDA-Public Use
  Company Number: US-WYE-H15947910

PATIENT
  Age: 41 Year
  Sex: Female
  Weight: 120.31 kg

DRUGS (6)
  1. ALAVERT [Suspect]
     Indication: SNEEZING
     Route: 048
     Dates: start: 20100610, end: 20100615
  2. ALAVERT [Suspect]
     Indication: RHINORRHOEA
  3. ALAVERT [Suspect]
     Indication: EYE PRURITUS
  4. DIOVAN [Concomitant]
  5. SERTRALINE HYDROCHLORIDE [Concomitant]
  6. CRESTOR [Concomitant]

REACTIONS (3)
  - DIARRHOEA [None]
  - FATIGUE [None]
  - NAUSEA [None]
